FAERS Safety Report 23775728 (Version 1)
Quarter: 2024Q2

REPORT INFORMATION
  Report Type: Spontaneous
  Country: FR (occurrence: FR)
  Receive Date: 20240423
  Receipt Date: 20240423
  Transmission Date: 20240715
  Serious: Yes (Hospitalization)
  Sender: FDA-Public Use
  Company Number: None

PATIENT
  Age: 66 Year
  Sex: Female

DRUGS (2)
  1. LEVOFLOXACIN [Suspect]
     Active Substance: LEVOFLOXACIN
     Indication: Device related infection
     Route: 048
     Dates: start: 20240214, end: 20240312
  2. MYCOBUTIN [Suspect]
     Active Substance: RIFABUTIN
     Indication: Device related infection
     Route: 048
     Dates: start: 20240214, end: 20240310

REACTIONS (2)
  - Agranulocytosis [Recovered/Resolved]
  - Hepatitis [Recovering/Resolving]

NARRATIVE: CASE EVENT DATE: 20240308
